FAERS Safety Report 19339361 (Version 3)
Quarter: 2021Q3

REPORT INFORMATION
  Report Type: Report from Study
  Country: GB (occurrence: GB)
  Receive Date: 20210530
  Receipt Date: 20210809
  Transmission Date: 20211014
  Serious: Yes (Other)
  Sender: FDA-Public Use
  Company Number: GB-JNJFOC-20210551159

PATIENT
  Age: 52 Year
  Sex: Female

DRUGS (2)
  1. STELARA [Suspect]
     Active Substance: USTEKINUMAB
  2. STELARA [Suspect]
     Active Substance: USTEKINUMAB
     Indication: CROHN^S DISEASE
     Route: 058

REACTIONS (2)
  - Mineral supplementation [Recovered/Resolved]
  - Breast mass [Recovered/Resolved]
